FAERS Safety Report 22348712 (Version 1)
Quarter: 2023Q2

REPORT INFORMATION
  Report Type: Spontaneous
  Country: IN (occurrence: IN)
  Receive Date: 20230522
  Receipt Date: 20230522
  Transmission Date: 20230721
  Serious: Yes (Death, Other)
  Sender: FDA-Public Use
  Company Number: IN-STRIDES ARCOLAB LIMITED-2023SP007385

PATIENT
  Age: 33 Year
  Sex: Male

DRUGS (15)
  1. PREDNISOLONE [Suspect]
     Active Substance: PREDNISOLONE
     Indication: B-cell type acute leukaemia
     Dosage: UNK (AS A PART OF BFM-90 PROTOCOL)
     Route: 065
  2. METHOTREXATE [Suspect]
     Active Substance: METHOTREXATE
     Indication: B-cell type acute leukaemia
     Dosage: UNK (AS A PART OF BFM-90 PROTOCOL)
     Route: 065
  3. DOXORUBICIN [Suspect]
     Active Substance: DOXORUBICIN
     Indication: B-cell type acute leukaemia
     Dosage: UNK (AS A PART OF BFM-90 PROTOCOL)
     Route: 065
  4. ETOPOSIDE [Suspect]
     Active Substance: ETOPOSIDE
     Indication: B-cell type acute leukaemia
     Dosage: UNK (AS A PART OF CLOVE REGIMEN)
     Route: 065
  5. VINCRISTINE [Suspect]
     Active Substance: VINCRISTINE
     Indication: B-cell type acute leukaemia
     Dosage: UNK (AS A PART OF BFM-90 PROTOCOL)
     Route: 065
  6. ASPARAGINASE [Suspect]
     Active Substance: ASPARAGINASE
     Indication: B-cell type acute leukaemia
     Dosage: UNK (AS A PART OF BFM-90 PROTOCOL)
     Route: 065
  7. CYCLOPHOSPHAMIDE [Suspect]
     Active Substance: CYCLOPHOSPHAMIDE
     Indication: B-cell type acute leukaemia
     Dosage: UNK (AS A PART OF BFM-90 PROTOCOL)
     Route: 065
  8. CYCLOPHOSPHAMIDE [Suspect]
     Active Substance: CYCLOPHOSPHAMIDE
     Dosage: UNK (AS A PART OF CLOVE REGIMEN)
     Route: 065
  9. CYTARABINE [Suspect]
     Active Substance: CYTARABINE
     Indication: B-cell type acute leukaemia
     Dosage: UNK (AS A PART OF BFM-90 PROTOCOL)
     Route: 065
  10. DAUNORUBICIN [Suspect]
     Active Substance: DAUNORUBICIN
     Indication: B-cell type acute leukaemia
     Dosage: UNK (AS A PART OF BFM-90 PROTOCOL)
     Route: 065
  11. MERCAPTOPURINE [Suspect]
     Active Substance: MERCAPTOPURINE
     Indication: B-cell type acute leukaemia
     Dosage: UNK (AS A PART OF BFM-90 PROTOCOL)
     Route: 065
  12. DASATINIB [Suspect]
     Active Substance: DASATINIB
     Indication: B-cell type acute leukaemia
     Dosage: UNK
     Route: 065
  13. CLOFARABINE [Suspect]
     Active Substance: CLOFARABINE
     Indication: B-cell type acute leukaemia
     Dosage: UNK (AS A PART OF CLOVE REGIMEN)
     Route: 065
  14. INOTUZUMAB OZOGAMICIN [Suspect]
     Active Substance: INOTUZUMAB OZOGAMICIN
     Indication: B-cell type acute leukaemia
     Dosage: 0.8 MILLIGRAM/SQ. METER, CYCLICAL (ON DAY 1 IN A 21 TO 28 DAY CYCLE )
     Route: 065
  15. INOTUZUMAB OZOGAMICIN [Suspect]
     Active Substance: INOTUZUMAB OZOGAMICIN
     Dosage: 0.5 MILLIGRAM/SQ. METER, CYCLICAL (ON DAYS 8 AND 15 IN A 21 TO 28 DAY CYCLE)
     Route: 065

REACTIONS (3)
  - Treatment failure [Fatal]
  - Disease recurrence [Fatal]
  - Off label use [Unknown]
